FAERS Safety Report 8589973-3 (Version None)
Quarter: 2012Q3

REPORT INFORMATION
  Report Type: 
  Country: None (occurrence: None)
  Receive Date: 20120813
  Receipt Date: 20120807
  Transmission Date: 20120928
  Serious: Yes (Life-Threatening, Hospitalization)
  Sender: FDA-Public Use
  Company Number: UG-GILEAD-2012-0059407

PATIENT
  Age: 43 Year
  Sex: Female

DRUGS (3)
  1. NIFEDIPINE [Concomitant]
  2. EMTRICITABINE/TENOFOVIR DISOPROXIL FUMARATE [Suspect]
     Indication: PROPHYLAXIS AGAINST HIV INFECTION
     Dosage: UNK
     Dates: start: 20100419
  3. PROPRANOLOL [Concomitant]

REACTIONS (1)
  - LOSS OF CONSCIOUSNESS [None]
